FAERS Safety Report 4514415-4 (Version None)
Quarter: 2004Q4

REPORT INFORMATION
  Report Type: 
  Country: None (occurrence: None)
  Receive Date: 20041124
  Receipt Date: 20041109
  Transmission Date: 20050328
  Serious: Yes (Death)
  Sender: FDA-Public Use
  Company Number: B0356765A

PATIENT
  Sex: 0

DRUGS (7)
  1. ALKERAN [Suspect]
     Indication: NON-HODGKIN'S LYMPHOMA
     Dosage: SEE IMAGE
  2. CYTARABINE [Suspect]
     Indication: NON-HODGKIN'S LYMPHOMA
     Dosage: SEE IMAGE
  3. CARMUSTINE [Suspect]
     Indication: NON-HODGKIN'S LYMPHOMA
     Dosage: SEE IMAGE
  4. ETOPOSIDE [Suspect]
     Indication: NON-HODGKIN'S LYMPHOMA
     Dosage: SEE IMAGE
  5. GRANULOCYTE COL. STIM. FACT [Concomitant]
  6. GRAN.MAC. COL. STIM. FACTOR [Concomitant]
  7. EPOGEN [Concomitant]

REACTIONS (2)
  - NEUTROPHIL COUNT ABNORMAL [None]
  - PLATELET DISORDER [None]
